FAERS Safety Report 5847603-5 (Version None)
Quarter: 2008Q3

REPORT INFORMATION
  Report Type: 
  Country: None (occurrence: None)
  Receive Date: 20080815
  Receipt Date: 20080815
  Transmission Date: 20090109
  Serious: Yes (Hospitalization, Disabling)
  Sender: FDA-Public Use
  Company Number: None

PATIENT
  Sex: Female
  Weight: 68.0396 kg

DRUGS (1)
  1. FOSAMAX [Suspect]
     Indication: OSTEOPENIA
     Dosage: 70MG WEEKLY PO
     Route: 048
     Dates: start: 20040305, end: 20080501

REACTIONS (4)
  - FALL [None]
  - FEMUR FRACTURE [None]
  - INJURY [None]
  - SPINAL FRACTURE [None]
